FAERS Safety Report 14979251 (Version 1)
Quarter: 2018Q2

REPORT INFORMATION
  Report Type: Spontaneous
  Country: US (occurrence: US)
  Receive Date: 20180606
  Receipt Date: 20180606
  Transmission Date: 20180711
  Serious: No
  Sender: FDA-Public Use
  Company Number: US-BAUSCH-BL-2018-003267

PATIENT
  Age: 78 Year
  Sex: Female
  Weight: 50.39 kg

DRUGS (2)
  1. LOTEPREDNOL ETABONATE OPHTHALMIC OINTMENT 0.5% [Suspect]
     Active Substance: LOTEPREDNOL ETABONATE
     Dosage: APPLIED TO ONLY ONE EYE AT BEDTIME
     Route: 047
     Dates: start: 20180201
  2. LOTEPREDNOL ETABONATE OPHTHALMIC OINTMENT 0.5% [Suspect]
     Active Substance: LOTEPREDNOL ETABONATE
     Indication: DRY EYE
     Dosage: APPLIED TO BOTH EYES AT BEDTIME
     Route: 047
     Dates: start: 20180131

REACTIONS (2)
  - Dizziness [Recovering/Resolving]
  - Balance disorder [Unknown]

NARRATIVE: CASE EVENT DATE: 20180201
